FAERS Safety Report 4842130-6 (Version None)
Quarter: 2005Q4

REPORT INFORMATION
  Report Type: 
  Country: None (occurrence: None)
  Receive Date: 20051130
  Receipt Date: 20051004
  Transmission Date: 20060501
  Serious: Yes (Hospitalization)
  Sender: FDA-Public Use
  Company Number: US-MERCK-0510USA02336

PATIENT
  Age: 57 Year
  Sex: Female
  Weight: 114 kg

DRUGS (18)
  1. VIOXX [Suspect]
     Indication: ARTHRITIS
     Route: 048
     Dates: end: 20040901
  2. NEURONTIN [Concomitant]
     Route: 065
  3. GABITRIL [Concomitant]
     Route: 065
  4. MYSOLINE [Concomitant]
     Route: 065
  5. LASIX [Concomitant]
     Route: 065
  6. NITROGLYCERIN [Concomitant]
     Route: 065
  7. CALCIUM (UNSPECIFIED) [Concomitant]
     Route: 065
  8. ZANTAC [Concomitant]
     Route: 065
  9. ECOTRIN [Concomitant]
     Route: 065
  10. VERELAN [Concomitant]
     Route: 065
  11. KLONOPIN [Concomitant]
     Route: 065
  12. PREMARIN [Concomitant]
     Route: 065
  13. PLAVIX [Concomitant]
     Route: 065
  14. ZOCOR [Concomitant]
     Route: 065
  15. VITAMIN E [Concomitant]
     Route: 065
  16. ASCORBIC ACID [Concomitant]
     Route: 065
  17. FOLIC ACID [Concomitant]
     Route: 065
  18. LORATADINE [Concomitant]
     Route: 065

REACTIONS (5)
  - AMNESIA [None]
  - CARDIAC DISORDER [None]
  - CEREBROVASCULAR ACCIDENT [None]
  - CHEST PAIN [None]
  - DEPRESSION [None]
